FAERS Safety Report 9227371 (Version 2)
Quarter: 2013Q2

REPORT INFORMATION
  Report Type: Spontaneous
  Country: DK (occurrence: None)
  Receive Date: 20130410
  Receipt Date: 20130513
  Transmission Date: 20140414
  Serious: Yes (Hospitalization)
  Sender: FDA-Public Use
  Company Number: 1660327

PATIENT
  Sex: Female

DRUGS (2)
  1. CARBOPLATIN [Suspect]
     Indication: UTERINE CANCER
     Dates: start: 20110209, end: 20110525
  2. PACLITAXEL [Suspect]
     Indication: UTERINE CANCER
     Dates: start: 20110209, end: 20110525

REACTIONS (14)
  - Neuritis [None]
  - Myalgia [None]
  - Arthralgia [None]
  - Back pain [None]
  - Pain in extremity [None]
  - Headache [None]
  - Hypersensitivity [None]
  - Dyspnoea [None]
  - Sensory disturbance [None]
  - Infection [None]
  - Pyrexia [None]
  - Malaise [None]
  - Pruritus [None]
  - Abdominal pain [None]
